FAERS Safety Report 9651161 (Version 1)
Quarter: 2013Q4

REPORT INFORMATION
  Report Type: Spontaneous
  Country: FR (occurrence: FR)
  Receive Date: 20131029
  Receipt Date: 20131029
  Transmission Date: 20140711
  Serious: Yes (Other)
  Sender: FDA-Public Use
  Company Number: PHHY2013FR119941

PATIENT
  Age: 93 Year
  Sex: Female

DRUGS (1)
  1. ONBREZ [Suspect]

REACTIONS (3)
  - Respiratory disorder [Recovered/Resolved]
  - Wheezing [Recovered/Resolved]
  - Incorrect route of drug administration [Recovered/Resolved]
